FAERS Safety Report 16823175 (Version 1)
Quarter: 2019Q3

REPORT INFORMATION
  Report Type: Spontaneous
  Country: US (occurrence: US)
  Receive Date: 20190918
  Receipt Date: 20190918
  Transmission Date: 20191005
  Serious: Yes (Hospitalization, Other)
  Sender: FDA-Public Use
  Company Number: US-MYLANLABS-2019M1087266

PATIENT
  Age: 6 Decade
  Sex: Male

DRUGS (6)
  1. FLUOXETINE [Suspect]
     Active Substance: FLUOXETINE HYDROCHLORIDE
     Indication: MOOD ALTERED
     Route: 048
     Dates: start: 20170718
  2. DESMOPRESSIN [Suspect]
     Active Substance: DESMOPRESSIN
     Indication: URINARY INCONTINENCE
     Dosage: AT BED TIME
     Route: 048
     Dates: start: 20171010
  3. CLOZAPINE. [Suspect]
     Active Substance: CLOZAPINE
     Dosage: AT BEDTIME
     Route: 048
  4. CLOZAPINE. [Suspect]
     Active Substance: CLOZAPINE
     Indication: SCHIZOPHRENIA
     Dosage: IN THE MORNING
     Route: 048
  5. LAMOTRIGINE. [Suspect]
     Active Substance: LAMOTRIGINE
     Indication: MOOD ALTERED
     Dosage: 100 MILLIGRAM
     Route: 048
     Dates: start: 20170912
  6. MELOXICAM. [Interacting]
     Active Substance: MELOXICAM
     Indication: ARTHRALGIA
     Route: 048
     Dates: start: 20171102

REACTIONS (8)
  - Hyponatraemia [Recovering/Resolving]
  - Drug interaction [Recovering/Resolving]
  - Therapeutic response decreased [Unknown]
  - Water intoxication [Recovering/Resolving]
  - Off label use [Unknown]
  - Fluid retention [Recovering/Resolving]
  - Urinary incontinence [Unknown]
  - Generalised tonic-clonic seizure [Recovered/Resolved]
